FAERS Safety Report 10453778 (Version 1)
Quarter: 2014Q3

REPORT INFORMATION
  Report Type: Spontaneous
  Country: US (occurrence: US)
  Receive Date: 20140915
  Receipt Date: 20140915
  Transmission Date: 20150326
  Serious: No
  Sender: FDA-Public Use
  Company Number: US-BRISTOL-MYERS SQUIBB COMPANY-21275300

PATIENT
  Age: 90 Year
  Sex: Female

DRUGS (11)
  1. DENOSUMAB [Concomitant]
     Active Substance: DENOSUMAB
  2. VALTREX [Concomitant]
     Active Substance: VALACYCLOVIR HYDROCHLORIDE
  3. SIMVASTATIN. [Concomitant]
     Active Substance: SIMVASTATIN
  4. ELIQUIS [Suspect]
     Active Substance: APIXABAN
  5. GLIPIZIDE. [Concomitant]
     Active Substance: GLIPIZIDE
  6. DIOVAN [Concomitant]
     Active Substance: VALSARTAN
  7. METFORMIN [Concomitant]
     Active Substance: METFORMIN HYDROCHLORIDE
  8. SPIRONOLACTONE. [Concomitant]
     Active Substance: SPIRONOLACTONE
  9. ENALAPRIL [Concomitant]
     Active Substance: ENALAPRIL
  10. HYDROCHLOROTHIAZIDE. [Concomitant]
     Active Substance: HYDROCHLOROTHIAZIDE
  11. DEXLANSOPRAZOLE [Concomitant]
     Active Substance: DEXLANSOPRAZOLE

REACTIONS (1)
  - Medication error [Unknown]
